FAERS Safety Report 14228854 (Version 2)
Quarter: 2018Q1

REPORT INFORMATION
  Report Type: Spontaneous
  Country: JP (occurrence: JP)
  Receive Date: 20171128
  Receipt Date: 20180119
  Transmission Date: 20180508
  Serious: Yes (Death, Other)
  Sender: FDA-Public Use
  Company Number: JP-009507513-1711JPN002213J

PATIENT
  Age: 89 Year
  Sex: Female
  Weight: 36 kg

DRUGS (3)
  1. KEYTRUDA [Suspect]
     Active Substance: PEMBROLIZUMAB
     Indication: SQUAMOUS CELL CARCINOMA OF LUNG
     Dosage: 200 MG, Q3W
     Route: 041
     Dates: start: 20170327, end: 20170417
  2. NEXIUM [Concomitant]
     Active Substance: ESOMEPRAZOLE MAGNESIUM
     Indication: PROPHYLAXIS
     Dosage: 20 MG, QD
     Route: 048
     Dates: start: 20170328, end: 20170519
  3. LOXOPROFEN [Concomitant]
     Active Substance: LOXOPROFEN
     Indication: SQUAMOUS CELL CARCINOMA OF LUNG
     Dosage: 60 MG, TID
     Route: 048
     Dates: start: 20170328, end: 20170519

REACTIONS (2)
  - Malignant neoplasm progression [Fatal]
  - Decreased appetite [Not Recovered/Not Resolved]

NARRATIVE: CASE EVENT DATE: 20170417
